FAERS Safety Report 10155628 (Version 1)
Quarter: 2014Q2

REPORT INFORMATION
  Report Type: Report from Study
  Country: US (occurrence: US)
  Receive Date: 20140506
  Receipt Date: 20140506
  Transmission Date: 20141212
  Serious: Yes (Hospitalization)
  Sender: FDA-Public Use
  Company Number: US-GLAXOSMITHKLINE-A1048578B

PATIENT
  Sex: Female
  Weight: 67 kg

DRUGS (12)
  1. NELARABINE [Suspect]
     Indication: T-CELL TYPE ACUTE LEUKAEMIA
     Dosage: 650MGM2 CYCLIC
     Route: 042
  2. MERCAPTOPURINE [Suspect]
     Indication: T-CELL TYPE ACUTE LEUKAEMIA
     Dosage: 75MGM2 PER DAY
     Route: 048
  3. VINCRISTINE [Suspect]
     Indication: T-CELL TYPE ACUTE LEUKAEMIA
     Dosage: 1.5MGM2 CYCLIC
     Route: 042
  4. DEXAMETHASONE [Suspect]
     Indication: T-CELL TYPE ACUTE LEUKAEMIA
     Dosage: 3MGM2 TWICE PER DAY
     Route: 048
  5. METHOTREXATE [Suspect]
     Indication: T-CELL TYPE ACUTE LEUKAEMIA
     Dosage: 20MGM2 CYCLIC
     Route: 048
  6. CYCLOPHOSPHAMIDE [Suspect]
     Indication: T-CELL TYPE ACUTE LEUKAEMIA
  7. CYTARABINE [Suspect]
     Indication: T-CELL TYPE ACUTE LEUKAEMIA
  8. DAUNORUBICIN [Suspect]
     Indication: T-CELL TYPE ACUTE LEUKAEMIA
  9. DOXORUBICIN HYDROCHLORIDE [Suspect]
     Indication: T-CELL TYPE ACUTE LEUKAEMIA
  10. PEG-ASPARAGINASE [Suspect]
     Indication: T-CELL TYPE ACUTE LEUKAEMIA
  11. PREDNISONE [Suspect]
     Indication: T-CELL TYPE ACUTE LEUKAEMIA
  12. METHOTREXATE [Suspect]
     Indication: T-CELL TYPE ACUTE LEUKAEMIA
     Route: 037

REACTIONS (2)
  - Herpes zoster [Not Recovered/Not Resolved]
  - Facial pain [Not Recovered/Not Resolved]
